FAERS Safety Report 10372542 (Version 2)
Quarter: 2014Q3

REPORT INFORMATION
  Report Type: Spontaneous
  Country: US (occurrence: US)
  Receive Date: 20140808
  Receipt Date: 20140808
  Transmission Date: 20150326
  Serious: No
  Sender: FDA-Public Use
  Company Number: US-BRISTOL-MYERS SQUIBB COMPANY-19166339

PATIENT
  Age: 68 Year
  Sex: Male

DRUGS (2)
  1. SPRYCEL [Suspect]
     Active Substance: DASATINIB
     Indication: CHRONIC MYELOID LEUKAEMIA
     Dosage: TABS
     Route: 048
     Dates: start: 20130624
  2. GABAPENTIN. [Concomitant]
     Active Substance: GABAPENTIN
     Dates: start: 201404

REACTIONS (5)
  - Skin infection [Unknown]
  - Headache [Unknown]
  - Immunosuppression [Unknown]
  - Chest pain [Unknown]
  - Neuropathy peripheral [Unknown]
